FAERS Safety Report 10336950 (Version 3)
Quarter: 2014Q3

REPORT INFORMATION
  Report Type: Spontaneous
  Country: JP (occurrence: JP)
  Receive Date: 20140723
  Receipt Date: 20140728
  Transmission Date: 20150326
  Serious: Yes (Life-Threatening, Other)
  Sender: FDA-Public Use
  Company Number: PHHY2014JP079575

PATIENT
  Age: 26 Year
  Sex: Male
  Weight: 45 kg

DRUGS (4)
  1. MAGMITT [Concomitant]
     Active Substance: MAGNESIUM OXIDE
     Indication: CONSTIPATION
     Dosage: 660 MG
     Route: 048
     Dates: start: 20140412
  2. XYZAL [Concomitant]
     Active Substance: LEVOCETIRIZINE DIHYDROCHLORIDE
     Indication: DERMATITIS ATOPIC
     Dosage: 10 MG
     Route: 048
  3. CLOZARIL [Suspect]
     Active Substance: CLOZAPINE
     Dosage: 600 MG, DAILY
     Route: 048
     Dates: start: 20140605
  4. CLOZARIL [Suspect]
     Active Substance: CLOZAPINE
     Indication: SCHIZOPHRENIA
     Dosage: UKN
     Route: 048
     Dates: start: 20140326

REACTIONS (8)
  - Epilepsy [Recovering/Resolving]
  - Clonus [Recovered/Resolved]
  - Hyperventilation [Unknown]
  - Somnolence [Unknown]
  - Nausea [Unknown]
  - Convulsion [Unknown]
  - Loss of consciousness [Unknown]
  - Altered state of consciousness [Unknown]

NARRATIVE: CASE EVENT DATE: 20140621
